FAERS Safety Report 7806275-0 (Version None)
Quarter: 2011Q4

REPORT INFORMATION
  Report Type: 
  Country: None (occurrence: None)
  Receive Date: 20111006
  Receipt Date: 20111006
  Transmission Date: 20120403
  Serious: Yes (Life-Threatening, Disabling)
  Sender: FDA-Public Use
  Company Number: None

PATIENT
  Age: 43 Year
  Sex: Male
  Weight: 104.1 kg

DRUGS (2)
  1. DESMOPRESSIN [Suspect]
     Indication: RENAL FAILURE
     Dosage: 1 SPRAYS IN EACH NOSTRILTWICEDAILY
     Dates: start: 20111004
  2. DESMOPRESSIN [Suspect]
     Indication: HYPOPITUITARISM
     Dosage: 1 SPRAYS IN EACH NOSTRILTWICEDAILY
     Dates: start: 20111004

REACTIONS (2)
  - DEVICE PHYSICAL PROPERTY ISSUE [None]
  - FEAR [None]
